FAERS Safety Report 11567778 (Version 1)
Quarter: 2015Q3

REPORT INFORMATION
  Report Type: Spontaneous
  Country: US (occurrence: None)
  Receive Date: 20150925
  Receipt Date: 20150925
  Transmission Date: 20151125
  Serious: Yes (Death, Hospitalization, Other)
  Sender: FDA-Public Use
  Company Number: US-ZYDUS-009093

PATIENT
  Age: 50 Year
  Sex: Female

DRUGS (4)
  1. BUPROPION (BUPROPION) [Suspect]
     Active Substance: BUPROPION
     Indication: PRODUCT USED FOR UNKNOWN INDICATION
     Route: 048
  2. FENOFIBRATE(FENOFIBRATE) [Concomitant]
  3. FAT EMULSION NOS [Suspect]
     Active Substance: EGG PHOSPHOLIPIDS\SAFFLOWER OIL\SOYBEAN OIL
     Indication: PRODUCT USED FOR UNKNOWN INDICATION
     Route: 042
  4. METOPROLOL(METOPROLOL) [Suspect]
     Active Substance: METOPROLOL
     Indication: PRODUCT USED FOR UNKNOWN INDICATION
     Route: 048

REACTIONS (8)
  - Intentional overdose [None]
  - Hypotension [None]
  - Bradycardia [None]
  - Cardiac arrest [None]
  - Somnolence [None]
  - Seizure [None]
  - Multi-organ failure [None]
  - Suicide attempt [None]
